FAERS Safety Report 4455404-8 (Version None)
Quarter: 2004Q3

REPORT INFORMATION
  Report Type: 
  Country: None (occurrence: None)
  Receive Date: 20040830
  Receipt Date: 20040527
  Transmission Date: 20050211
  Serious: No
  Sender: FDA-Public Use
  Company Number: 204235

PATIENT
  Age: 42 Year
  Sex: Female
  Weight: 72.7 kg

DRUGS (10)
  1. XOLAIR [Suspect]
     Indication: ASTHMA
     Dosage: 300 MG,Q4W,SUBCUTANEOUS
     Route: 058
     Dates: start: 20031216
  2. XOLAIR [Suspect]
     Indication: ASTHMA
     Dosage: 300 MG,Q4W,SUBCUTANEOUS
     Route: 058
     Dates: start: 20040218
  3. ADVAIR (SALMETEROL XINAFOATE, FLUTICASONE PROPIONATE) [Concomitant]
  4. ZANTAC [Concomitant]
  5. ALLEGRA (FEOXFENADINE HYDROCHLORIDE) [Concomitant]
  6. SINGULAIR [Concomitant]
  7. TRAZODONE (TRAZODONE HYDROCHLORIDE) [Concomitant]
  8. KLONOPIN [Concomitant]
  9. VICODIN (HYDROCODONE BITARTRATE, ACETAMINOPHEN) [Concomitant]
  10. OXYGEN (OXYGEN) [Concomitant]

REACTIONS (2)
  - THROAT TIGHTNESS [None]
  - WHEEZING [None]
